FAERS Safety Report 17980386 (Version 2)
Quarter: 2020Q3

REPORT INFORMATION
  Report Type: Spontaneous
  Country: BR (occurrence: BR)
  Receive Date: 20200703
  Receipt Date: 20200909
  Transmission Date: 20201103
  Serious: Yes (Death, Other)
  Sender: FDA-Public Use
  Company Number: BR-AMGEN-BRASP2020105759

PATIENT
  Sex: Male

DRUGS (1)
  1. BLINCYTO [Suspect]
     Active Substance: BLINATUMOMAB
     Indication: B PRECURSOR TYPE ACUTE LEUKAEMIA
     Dosage: UNK
     Route: 065

REACTIONS (2)
  - Cardiac disorder [Recovered/Resolved]
  - Acute lymphocytic leukaemia recurrent [Fatal]

NARRATIVE: CASE EVENT DATE: 2018
